FAERS Safety Report 12193767 (Version 2)
Quarter: 2016Q3

REPORT INFORMATION
  Report Type: Report from Study
  Country: US (occurrence: US)
  Receive Date: 20160321
  Receipt Date: 20160704
  Transmission Date: 20161109
  Serious: Yes (Other)
  Sender: FDA-Public Use
  Company Number: US-ROCHE-1727244

PATIENT

DRUGS (15)
  1. NALBUPHINE [Suspect]
     Active Substance: NALBUPHINE
     Indication: SEDATION
     Route: 065
  2. KETAMINE [Suspect]
     Active Substance: KETAMINE
     Indication: SEDATION
     Route: 051
  3. FENTANYL. [Suspect]
     Active Substance: FENTANYL
     Indication: SEDATION
     Route: 065
  4. MEPERIDINE [Suspect]
     Active Substance: MEPERIDINE
     Indication: SEDATION
     Route: 065
  5. DIAZEPAM. [Suspect]
     Active Substance: DIAZEPAM
     Indication: SEDATION
     Route: 042
  6. METHOHEXITAL [Suspect]
     Active Substance: METHOHEXITAL
     Indication: SEDATION
     Route: 051
  7. PROPOFOL. [Suspect]
     Active Substance: PROPOFOL
     Indication: SEDATION
     Route: 051
  8. ISOFLURANE. [Suspect]
     Active Substance: ISOFLURANE
     Indication: SEDATION
     Route: 065
  9. MIDAZOLAM [Suspect]
     Active Substance: MIDAZOLAM\MIDAZOLAM HYDROCHLORIDE
     Indication: SEDATION
     Route: 042
  10. HALOTHANE. [Suspect]
     Active Substance: HALOTHANE
     Indication: SEDATION
     Route: 065
  11. ALFENTANIL. [Suspect]
     Active Substance: ALFENTANIL
     Indication: SEDATION
     Route: 065
  12. REMIFENTANIL [Suspect]
     Active Substance: REMIFENTANIL
     Indication: SEDATION
     Route: 065
  13. NITROUS OXIDE. [Suspect]
     Active Substance: NITROUS OXIDE
     Indication: SEDATION
     Route: 065
  14. SEVOFLURANE. [Suspect]
     Active Substance: SEVOFLURANE
     Indication: SEDATION
     Route: 065
  15. DESFLURANE. [Suspect]
     Active Substance: DESFLURANE
     Indication: SEDATION
     Route: 065

REACTIONS (8)
  - Peripheral vascular disorder [Unknown]
  - Delayed recovery from anaesthesia [Unknown]
  - Syncope [Unknown]
  - Respiratory arrest [Unknown]
  - Vomiting [Unknown]
  - Laryngospasm [Unknown]
  - Arrhythmia [Unknown]
  - Bronchospasm [Unknown]
